FAERS Safety Report 10055965 (Version 2)
Quarter: 2014Q2

REPORT INFORMATION
  Report Type: Spontaneous
  Country: US (occurrence: US)
  Receive Date: 20140403
  Receipt Date: 20140611
  Transmission Date: 20141212
  Serious: No
  Sender: FDA-Public Use
  Company Number: US-PFIZER INC-2014091596

PATIENT
  Age: 63 Year
  Sex: Female

DRUGS (2)
  1. SOMAVERT [Suspect]
     Indication: ACROMEGALY
     Dosage: 10 MG, DAILY
     Route: 058
     Dates: start: 20130918
  2. SOMAVERT [Suspect]
     Indication: GIGANTISM
     Dosage: 10 MG, DAILY
     Route: 058
     Dates: start: 20140328

REACTIONS (2)
  - Headache [Unknown]
  - Malaise [Unknown]
